FAERS Safety Report 10230640 (Version 1)
Quarter: 2014Q2

REPORT INFORMATION
  Report Type: Spontaneous
  Country: US (occurrence: None)
  Receive Date: 20140610
  Receipt Date: 20140610
  Transmission Date: 20141212
  Serious: Yes (Disabling)
  Sender: FDA-Public Use
  Company Number: None

PATIENT
  Age: 44 Year
  Sex: Male
  Weight: 90.72 kg

DRUGS (1)
  1. METHACHOLINE [Suspect]

REACTIONS (6)
  - Dyspnoea [None]
  - Hot flush [None]
  - Renal disorder [None]
  - Spinal pain [None]
  - Hypersomnia [None]
  - Somnolence [None]
